FAERS Safety Report 19454848 (Version 1)
Quarter: 2021Q2

REPORT INFORMATION
  Report Type: Spontaneous
  Country: US (occurrence: US)
  Receive Date: 20210623
  Receipt Date: 20210623
  Transmission Date: 20210717
  Serious: Yes (Other)
  Sender: FDA-Public Use
  Company Number: US-AMGEN-USASP2021092602

PATIENT
  Age: 34 Year
  Sex: Female

DRUGS (3)
  1. PACLITAXEL. [Concomitant]
     Active Substance: PACLITAXEL
  2. MITOMYCIN C [Concomitant]
     Active Substance: MITOMYCIN
  3. FILGRASTIM [Suspect]
     Active Substance: FILGRASTIM
     Indication: PRODUCT USED FOR UNKNOWN INDICATION
     Route: 065

REACTIONS (5)
  - Intraductal proliferative breast lesion [Recovered/Resolved]
  - Papillary thyroid cancer [Recovered/Resolved]
  - Radiation skin injury [Recovered/Resolved]
  - Vulvar dysplasia [Recovered/Resolved]
  - Neuropathy peripheral [Unknown]
